FAERS Safety Report 4421916-6 (Version None)
Quarter: 2004Q3

REPORT INFORMATION
  Report Type: 
  Country: None (occurrence: None)
  Receive Date: 20040806
  Receipt Date: 20040806
  Transmission Date: 20050211
  Serious: Yes (Hospitalization)
  Sender: FDA-Public Use
  Company Number: None

PATIENT
  Sex: Female

DRUGS (1)
  1. TOPOTECAN 4 MG GLAXO SMITH KLINE [Suspect]
     Indication: CARCINOMA
     Dosage: INTRAVENOUS
     Route: 042

REACTIONS (7)
  - ABDOMINAL PAIN [None]
  - ASTHENIA [None]
  - DEHYDRATION [None]
  - DIARRHOEA [None]
  - FAECES DISCOLOURED [None]
  - HYPOKALAEMIA [None]
  - LEUKOPENIA [None]
